FAERS Safety Report 6164368-0 (Version None)
Quarter: 2009Q2

REPORT INFORMATION
  Report Type: 
  Country: None (occurrence: None)
  Receive Date: 20090422
  Receipt Date: 20090414
  Transmission Date: 20091009
  Serious: Yes (Hospitalization)
  Sender: FDA-Public Use
  Company Number: US-AMGEN-US342882

PATIENT
  Sex: Male

DRUGS (1)
  1. ROMIPLOSTIM - BLINDED [Suspect]
     Indication: MYELODYSPLASTIC SYNDROME

REACTIONS (1)
  - DEEP VEIN THROMBOSIS [None]
